FAERS Safety Report 14096769 (Version 1)
Quarter: 2017Q4

REPORT INFORMATION
  Report Type: Spontaneous
  Country: DE (occurrence: DE)
  Receive Date: 20171017
  Receipt Date: 20171017
  Transmission Date: 20180321
  Serious: Yes (Hospitalization)
  Sender: FDA-Public Use
  Company Number: DE-ROCHE-2009879

PATIENT
  Sex: Male

DRUGS (1)
  1. XOLAIR [Suspect]
     Active Substance: OMALIZUMAB
     Indication: ASTHMA
     Dosage: 2 DF
     Route: 065
     Dates: start: 20170921, end: 20170921

REACTIONS (2)
  - Cardiac failure [Unknown]
  - Asthma [Unknown]

NARRATIVE: CASE EVENT DATE: 20170926
